FAERS Safety Report 9372241 (Version 1)
Quarter: 2013Q2

REPORT INFORMATION
  Report Type: Report from Study
  Country: US (occurrence: US)
  Receive Date: 20130627
  Receipt Date: 20130627
  Transmission Date: 20140414
  Serious: Yes (Other)
  Sender: FDA-Public Use
  Company Number: US-MYLANLABS-2012S1017671

PATIENT
  Age: 69 Year
  Sex: Female

DRUGS (8)
  1. CLOZAPINE TABLETS [Suspect]
     Indication: SCHIZOPHRENIA, PARANOID TYPE
     Route: 048
     Dates: start: 201205, end: 201208
  2. CLOZAPINE TABLETS [Suspect]
     Indication: SCHIZOPHRENIA, PARANOID TYPE
     Route: 048
     Dates: end: 201210
  3. HALOPERIDOL [Concomitant]
  4. TRAZODONE [Concomitant]
  5. LEXAPRO [Concomitant]
  6. COGENTIN [Concomitant]
  7. MULTIVITAMIN [Concomitant]
  8. FOLIC ACID [Concomitant]

REACTIONS (2)
  - Granulocytopenia [Not Recovered/Not Resolved]
  - Leukopenia [Not Recovered/Not Resolved]
